FAERS Safety Report 13341987 (Version 1)
Quarter: 2017Q1

REPORT INFORMATION
  Report Type: Spontaneous
  Country: US (occurrence: US)
  Receive Date: 20170316
  Receipt Date: 20170316
  Transmission Date: 20170428
  Serious: Yes (Other)
  Sender: FDA-Public Use
  Company Number: US-ROCHE-1777688

PATIENT
  Age: 72 Year
  Sex: Female
  Weight: 37.14 kg

DRUGS (20)
  1. LISINOPRIL. [Concomitant]
     Active Substance: LISINOPRIL
     Route: 048
  2. RANITIDINE HYDROCHLORIDE. [Concomitant]
     Active Substance: RANITIDINE HYDROCHLORIDE
     Route: 048
  3. NIFEDIPINE. [Concomitant]
     Active Substance: NIFEDIPINE
     Route: 048
  4. ONDANSETRON [Concomitant]
     Active Substance: ONDANSETRON
     Route: 048
  5. MIRTAZAPINE. [Concomitant]
     Active Substance: MIRTAZAPINE
     Route: 048
  6. FERREX [Concomitant]
     Dosage: 150-25-1 MG-MCG CAPSULE
     Route: 048
  7. MILK OF MAGNESIA [Concomitant]
     Active Substance: MAGNESIUM HYDROXIDE
     Route: 048
  8. FUROSEMIDE. [Concomitant]
     Active Substance: FUROSEMIDE
     Route: 048
  9. ERIVEDGE [Suspect]
     Active Substance: VISMODEGIB
     Indication: BASAL CELL CARCINOMA
     Route: 048
     Dates: start: 201209, end: 20160606
  10. METOPROLOL TARTRATE. [Concomitant]
     Active Substance: METOPROLOL TARTRATE
     Route: 065
  11. TYLENOL [Concomitant]
     Active Substance: ACETAMINOPHEN
     Route: 048
  12. LANTUS [Concomitant]
     Active Substance: INSULIN GLARGINE
     Dosage: 30 UNITS,
     Route: 058
  13. HUMALOG [Concomitant]
     Active Substance: INSULIN LISPRO
     Dosage: 100 UNIT/ML CARTRIDGE
     Route: 058
  14. BISCOLAX [Concomitant]
     Active Substance: BISACODYL
     Dosage: PR DAILY PRN (AS NEEDED)
     Route: 065
  15. ESCITALOPRAM [Concomitant]
     Active Substance: ESCITALOPRAM OXALATE
     Route: 048
  16. NOVOLOG [Concomitant]
     Active Substance: INSULIN ASPART
     Dosage: 10 UNITS
     Route: 058
  17. FISH OIL [Concomitant]
     Active Substance: FISH OIL
     Route: 048
  18. POTASSIUM CHLORIDE. [Concomitant]
     Active Substance: POTASSIUM CHLORIDE
     Route: 048
  19. LORAZEPAM. [Concomitant]
     Active Substance: LORAZEPAM
     Route: 048
  20. ASPIRIN. [Concomitant]
     Active Substance: ASPIRIN
     Route: 048

REACTIONS (2)
  - Decreased appetite [Unknown]
  - Weight decreased [Not Recovered/Not Resolved]

NARRATIVE: CASE EVENT DATE: 201407
